FAERS Safety Report 23918808 (Version 1)
Quarter: 2024Q2

REPORT INFORMATION
  Report Type: Spontaneous
  Country: US (occurrence: US)
  Receive Date: 20240530
  Receipt Date: 20240530
  Transmission Date: 20240716
  Serious: No
  Sender: FDA-Public Use
  Company Number: US-STRIDES ARCOLAB LIMITED-2024SP005754

PATIENT
  Age: 7 Decade
  Sex: Male

DRUGS (9)
  1. LEVETIRACETAM [Suspect]
     Active Substance: LEVETIRACETAM
     Indication: Neuromyotonia
     Dosage: 500 MILLIGRAM, BID
     Route: 065
  2. LEVETIRACETAM [Suspect]
     Active Substance: LEVETIRACETAM
     Indication: Eye disorder
  3. DIVALPROEX SODIUM [Suspect]
     Active Substance: DIVALPROEX SODIUM
     Indication: Neuromyotonia
     Dosage: 250 MILLIGRAM
     Route: 065
  4. DIVALPROEX SODIUM [Suspect]
     Active Substance: DIVALPROEX SODIUM
     Indication: Eye disorder
  5. BETAXOLOL [Concomitant]
     Active Substance: BETAXOLOL\BETAXOLOL HYDROCHLORIDE
     Indication: Superior oblique myokymia
     Dosage: UNK
     Route: 061
  6. CARBAMAZEPINE [Concomitant]
     Active Substance: CARBAMAZEPINE
     Indication: Neuromyotonia
     Dosage: UNK
     Route: 065
  7. CARBAMAZEPINE [Concomitant]
     Active Substance: CARBAMAZEPINE
     Indication: Eye disorder
     Dosage: UNK
     Route: 065
  8. LAMOTRIGINE [Concomitant]
     Active Substance: LAMOTRIGINE
     Indication: Neuromyotonia
     Dosage: 200 MILLIGRAM, QD
     Route: 065
  9. LAMOTRIGINE [Concomitant]
     Active Substance: LAMOTRIGINE
     Indication: Eye disorder

REACTIONS (2)
  - Drug intolerance [Unknown]
  - Off label use [Unknown]
